FAERS Safety Report 19086582 (Version 1)
Quarter: 2021Q2

REPORT INFORMATION
  Report Type: Spontaneous
  Country: US (occurrence: US)
  Receive Date: 20210402
  Receipt Date: 20210402
  Transmission Date: 20210717
  Serious: Yes (Hospitalization)
  Sender: FDA-Public Use
  Company Number: US-EPICPHARMA-US-2021EPCLIT00351

PATIENT
  Age: 43 Year
  Sex: Female

DRUGS (4)
  1. NALOXONE [Interacting]
     Active Substance: NALOXONE
     Route: 065
  2. DOPAMINE [Interacting]
     Active Substance: DOPAMINE HYDROCHLORIDE
     Route: 065
  3. ATROPINE. [Suspect]
     Active Substance: ATROPINE
     Route: 065
  4. TIZANIDINE. [Suspect]
     Active Substance: TIZANIDINE
     Indication: PRODUCT USED FOR UNKNOWN INDICATION
     Route: 065

REACTIONS (7)
  - Miosis [Recovered/Resolved]
  - Toxicity to various agents [Unknown]
  - Lethargy [Recovered/Resolved]
  - Hypotension [Recovered/Resolved]
  - Intentional overdose [Unknown]
  - Hypertension [Recovered/Resolved]
  - Tachycardia [Recovered/Resolved]
